FAERS Safety Report 20696769 (Version 1)
Quarter: 2022Q2

REPORT INFORMATION
  Report Type: Spontaneous
  Country: BR (occurrence: BR)
  Receive Date: 20220411
  Receipt Date: 20220411
  Transmission Date: 20220720
  Serious: Yes (Other)
  Sender: FDA-Public Use
  Company Number: BR-JNJFOC-20220413984

PATIENT

DRUGS (1)
  1. DARATUMUMAB [Suspect]
     Active Substance: DARATUMUMAB
     Indication: Product used for unknown indication
     Dosage: 50 ML/H
     Route: 065

REACTIONS (2)
  - Vocal cord dysfunction [Unknown]
  - Infusion related reaction [Unknown]
